FAERS Safety Report 4763017-3 (Version None)
Quarter: 2005Q3

REPORT INFORMATION
  Report Type: 
  Country: None (occurrence: None)
  Receive Date: 20050907
  Receipt Date: 20041005
  Transmission Date: 20060218
  Serious: Yes (Hospitalization)
  Sender: FDA-Public Use
  Company Number: DE-MERCK-0410DEU00126

PATIENT
  Age: 58 Year
  Sex: Male
  Weight: 85 kg

DRUGS (12)
  1. VIOXX [Suspect]
     Indication: OSTEOARTHRITIS
     Route: 048
     Dates: start: 20010504, end: 20040901
  2. VIOXX [Suspect]
     Route: 048
     Dates: start: 20000404, end: 20000101
  3. PANTOPRAZOLE SODIUM [Concomitant]
     Indication: GASTRITIS
     Route: 048
     Dates: start: 19990101
  4. ATORVASTATIN CALCIUM [Concomitant]
     Indication: HYPERCHOLESTEROLAEMIA
     Route: 048
     Dates: start: 19990101
  5. PERINDOPRIL ERBUMINE [Concomitant]
     Indication: HYPERTENSION
     Route: 048
     Dates: start: 19990101
  6. SILIBININ [Concomitant]
     Indication: HEPATIC STEATOSIS
     Route: 048
     Dates: start: 19990101
  7. ADEMETIONINE SULFATE TOSYLATE [Concomitant]
     Route: 048
  8. LORMETAZEPAM [Concomitant]
     Indication: SLEEP DISORDER
     Route: 048
     Dates: start: 19990101
  9. TAMSULOSIN HYDROCHLORIDE [Concomitant]
     Indication: PROSTATISM
     Route: 048
     Dates: start: 19990101
  10. AMYLASE AND BROMELAINS AND CHYMOTRYPSIN AND LIPASE AND PANCREATIN AND [Concomitant]
     Route: 048
  11. ASPIRIN [Concomitant]
     Route: 048
  12. SILDENAFIL CITRATE [Concomitant]
     Route: 048
     Dates: start: 19990101

REACTIONS (7)
  - ANGINA PECTORIS [None]
  - ANGINA UNSTABLE [None]
  - BENIGN PROSTATIC HYPERPLASIA [None]
  - CORONARY ARTERY DISEASE [None]
  - CORONARY ARTERY STENOSIS [None]
  - ERECTILE DYSFUNCTION [None]
  - PROSTATITIS [None]
